FAERS Safety Report 19889278 (Version 4)
Quarter: 2021Q4

REPORT INFORMATION
  Report Type: Report from Study
  Country: ES (occurrence: ES)
  Receive Date: 20210928
  Receipt Date: 20211021
  Transmission Date: 20220303
  Serious: Yes (Hospitalization)
  Sender: FDA-Public Use
  Company Number: ES-GLAXOSMITHKLINE-ES2021GSK189928

PATIENT
  Age: 71 Year
  Sex: Female
  Weight: 54.7 kg

DRUGS (13)
  1. NIRAPARIB [Suspect]
     Active Substance: NIRAPARIB
     Indication: Ovarian epithelial cancer
     Dosage: 100 MG
     Dates: end: 20210819
  2. DOSTARLIMAB [Suspect]
     Active Substance: DOSTARLIMAB
     Indication: Ovarian epithelial cancer
     Dosage: 500 MG
     Dates: start: 20200806, end: 20200806
  3. DOSTARLIMAB [Suspect]
     Active Substance: DOSTARLIMAB
     Dosage: 1000 MG
     Dates: start: 20210805, end: 20210805
  4. CARBOPLATIN [Suspect]
     Active Substance: CARBOPLATIN
     Indication: Ovarian cancer
     Dosage: 6 AUC
     Route: 042
     Dates: start: 20200709, end: 20200709
  5. PACLITAXEL [Suspect]
     Active Substance: PACLITAXEL
     Indication: Ovarian epithelial cancer
     Dosage: 270 MG
     Route: 042
     Dates: start: 20200709, end: 20200709
  6. BEVACIZUMAB [Suspect]
     Active Substance: BEVACIZUMAB
     Indication: Ovarian epithelial cancer
     Dosage: 7.5 MG/KG
     Route: 042
     Dates: start: 20200709, end: 20200709
  7. BEVACIZUMAB [Suspect]
     Active Substance: BEVACIZUMAB
     Dosage: 398 MG/KG
     Route: 042
     Dates: start: 20210805, end: 20210805
  8. CISPLATIN [Concomitant]
     Active Substance: CISPLATIN
     Dosage: UNK
  9. DOCETAXEL [Concomitant]
     Active Substance: DOCETAXEL
     Dosage: UNK
  10. PRIMPERAN [Concomitant]
     Active Substance: METOCLOPRAMIDE HYDROCHLORIDE
     Indication: Nausea
     Dosage: 10 MG, PRN
     Route: 048
     Dates: start: 20210820
  11. PRIMPERAN [Concomitant]
     Active Substance: METOCLOPRAMIDE HYDROCHLORIDE
     Indication: Vomiting
  12. DIAZEPAM [Concomitant]
     Active Substance: DIAZEPAM
     Indication: Palpitations
     Dosage: 5 MG, QD
     Route: 048
     Dates: start: 20210820
  13. AMOXICILINA + CLAVULANATE [Concomitant]
     Indication: Antibiotic therapy
     Dosage: 875/125 G, QD
     Route: 048
     Dates: start: 20210825, end: 20210829

REACTIONS (1)
  - Pleural effusion [Not Recovered/Not Resolved]

NARRATIVE: CASE EVENT DATE: 20210904
